FAERS Safety Report 19126909 (Version 1)
Quarter: 2021Q2

REPORT INFORMATION
  Report Type: Spontaneous
  Country: US (occurrence: US)
  Receive Date: 20210413
  Receipt Date: 20210413
  Transmission Date: 20210717
  Serious: Yes (Hospitalization)
  Sender: FDA-Public Use
  Company Number: None

PATIENT
  Age: 41 Year
  Sex: Female
  Weight: 94.1 kg

DRUGS (1)
  1. INFLIXIMAB [Suspect]
     Active Substance: INFLIXIMAB

REACTIONS (7)
  - Nausea [None]
  - Vomiting [None]
  - Chills [None]
  - Abdominal distension [None]
  - Abdominal pain [None]
  - Retching [None]
  - Night sweats [None]

NARRATIVE: CASE EVENT DATE: 20190718
